FAERS Safety Report 19793026 (Version 1)
Quarter: 2021Q3

REPORT INFORMATION
  Report Type: Spontaneous
  Country: US (occurrence: US)
  Receive Date: 20210906
  Receipt Date: 20210906
  Transmission Date: 20211014
  Serious: Yes (Hospitalization)
  Sender: FDA-Public Use
  Company Number: US-AVEO ONCOLOGY-2021-AVEO-US003552

PATIENT

DRUGS (19)
  1. HYDROCORTISONE. [Concomitant]
     Active Substance: HYDROCORTISONE
     Dosage: 2.5 %
  2. MONTELUKAST [Concomitant]
     Active Substance: MONTELUKAST SODIUM
     Dosage: 10 MG
  3. MULTIVITAMIN [Concomitant]
     Active Substance: VITAMINS
  4. CHLORTHALIDONE. [Concomitant]
     Active Substance: CHLORTHALIDONE
     Dosage: 25 MG
  5. LEVOTHYROXINE. [Concomitant]
     Active Substance: LEVOTHYROXINE
     Dosage: 125 UG
  6. METHOCARBAMOL. [Concomitant]
     Active Substance: METHOCARBAMOL
     Dosage: 750 MG
  7. LIDODERM [Concomitant]
     Active Substance: LIDOCAINE
     Dosage: 5 %
  8. FOTIVDA [Suspect]
     Active Substance: TIVOZANIB HYDROCHLORIDE
     Indication: RENAL CELL CARCINOMA
     Dosage: 1.37 MG, DAILY FOR 21 DAYS THEN 7 DAYS OFF
     Route: 048
     Dates: start: 20210616, end: 20210831
  9. ACID?PEP [Concomitant]
     Dosage: 20 MG
  10. ELIQUIS [Concomitant]
     Active Substance: APIXABAN
     Dosage: 2.5 MG
  11. VITAMIN B12 [Concomitant]
     Active Substance: CYANOCOBALAMIN
  12. VITAMIN D3 [Concomitant]
     Active Substance: CHOLECALCIFEROL
  13. ADVAIR DISKUS [Concomitant]
     Active Substance: FLUTICASONE PROPIONATE\SALMETEROL XINAFOATE
     Dosage: 250?50 UG
  14. BUPROPION HCL [Concomitant]
     Active Substance: BUPROPION HYDROCHLORIDE
     Dosage: 75 MG
  15. CELEBREX [Concomitant]
     Active Substance: CELECOXIB
     Dosage: 200 MG
  16. PROAIR HFA [Concomitant]
     Active Substance: ALBUTEROL SULFATE
  17. GABAPENTIN. [Concomitant]
     Active Substance: GABAPENTIN
     Dosage: 300 UNK
  18. OXYCODONE [Concomitant]
     Active Substance: OXYCODONE
     Dosage: 10 MG
  19. PANTOPRAZOLE [Concomitant]
     Active Substance: PANTOPRAZOLE
     Dosage: 40 MG

REACTIONS (1)
  - Seizure [Unknown]

NARRATIVE: CASE EVENT DATE: 20210831
